FAERS Safety Report 5206330-8 (Version None)
Quarter: 2006Q4

REPORT INFORMATION
  Report Type: 
  Country: None (occurrence: None)
  Receive Date: 20061026
  Receipt Date: 20060801
  Transmission Date: 20070319
  Serious: Yes (Other)
  Sender: FDA-Public Use
  Company Number: 2006087640

PATIENT
  Age: 64 Year
  Sex: Female
  Weight: 86.1834 kg

DRUGS (6)
  1. LYRICA [Suspect]
     Indication: NEUROPATHY PERIPHERAL
     Dosage: 50 MG (50 MG, 1 IN 1 D), UNKNOWN
     Dates: start: 20060501, end: 20060101
  2. PREMARIN [Concomitant]
  3. SYNTHROID [Concomitant]
  4. PLAQUENIL [Concomitant]
  5. FLOVENT [Concomitant]
  6. ALBUTEROL [Concomitant]

REACTIONS (3)
  - DRUG INEFFECTIVE [None]
  - OEDEMA PERIPHERAL [None]
  - VENTRICULAR FIBRILLATION [None]
